FAERS Safety Report 4528907-5 (Version None)
Quarter: 2004Q4

REPORT INFORMATION
  Report Type: 
  Country: None (occurrence: None)
  Receive Date: 20041215
  Receipt Date: 20041215
  Transmission Date: 20050328
  Serious: No
  Sender: FDA-Public Use
  Company Number: None

PATIENT
  Sex: Male
  Weight: 39.4629 kg

DRUGS (1)
  1. KLONOPIN [Suspect]
     Dosage: 0.75MG TID GI

REACTIONS (3)
  - IRRITABILITY [None]
  - NERVOUS SYSTEM DISORDER [None]
  - TIC [None]
